FAERS Safety Report 4663166-4 (Version None)
Quarter: 2005Q2

REPORT INFORMATION
  Report Type: 
  Country: None (occurrence: None)
  Receive Date: 20050516
  Receipt Date: 20041210
  Transmission Date: 20051028
  Serious: Yes (Other)
  Sender: FDA-Public Use
  Company Number: 002#1#2004-00292

PATIENT
  Age: 62 Year
  Sex: Male

DRUGS (9)
  1. HYOSCYAMINE-SULFATE-EXTENDED-RELEASE-0.375MG-TABLETS (HYOSCYAMINE SULF [Suspect]
     Indication: GASTRIC DISORDER
     Dosage: .375 MG, ORAL
     Route: 048
     Dates: start: 20041013, end: 20041201
  2. SERTRALINE HCL [Suspect]
     Indication: MAJOR DEPRESSION
     Dosage: 100 MG, 1 IN 1 D, ORAL
     Route: 048
     Dates: start: 20040701, end: 20041101
  3. METOCLOPRAMIDE [Suspect]
     Indication: GASTRIC DISORDER
     Dosage: ORAL
     Route: 048
     Dates: start: 20040701, end: 20041101
  4. ESOMEPRAZOLE [Concomitant]
  5. ATORVASTATIN-CALCIUM [Concomitant]
  6. FAMOTIDINE [Concomitant]
  7. ACETYLSALICYLIC-ACID [Concomitant]
  8. DOCUSATE [Concomitant]
  9. MULTI-VITAMIN [Concomitant]

REACTIONS (5)
  - BRUXISM [None]
  - DYSTONIA [None]
  - ORAL SOFT TISSUE DISORDER [None]
  - TARDIVE DYSKINESIA [None]
  - TRISMUS [None]
